FAERS Safety Report 7315301-7 (Version None)
Quarter: 2011Q1

REPORT INFORMATION
  Report Type: 
  Country: None (occurrence: None)
  Receive Date: 20110225
  Receipt Date: 20110222
  Transmission Date: 20110831
  Serious: Yes (Other)
  Sender: FDA-Public Use
  Company Number: FR-SANOFI-AVENTIS-2011SA001878

PATIENT
  Age: 73 Year
  Sex: Female

DRUGS (1)
  1. GLYBURIDE [Suspect]
     Route: 048
     Dates: start: 20101210

REACTIONS (3)
  - PARAESTHESIA ORAL [None]
  - APHASIA [None]
  - BRAIN NEOPLASM [None]
